FAERS Safety Report 22027826 (Version 1)
Quarter: 2023Q1

REPORT INFORMATION
  Report Type: Spontaneous
  Country: US (occurrence: None)
  Receive Date: 20230220
  Receipt Date: 20230220
  Transmission Date: 20230417
  Serious: Yes (unspecified)
  Sender: FDA-Public Use
  Company Number: None

PATIENT
  Age: 30 Year
  Sex: Male
  Weight: 103.5 kg

DRUGS (4)
  1. SUBOXONE [Suspect]
     Active Substance: BUPRENORPHINE HYDROCHLORIDE\NALOXONE HYDROCHLORIDE
     Indication: Dependence
     Dates: start: 20210114, end: 20230115
  2. SEROQUEL [Concomitant]
     Active Substance: QUETIAPINE FUMARATE
  3. SUBLOCADE [Concomitant]
     Active Substance: BUPRENORPHINE
  4. ZYRTEC [Concomitant]
     Active Substance: CETIRIZINE HYDROCHLORIDE

REACTIONS (1)
  - Dental caries [None]

NARRATIVE: CASE EVENT DATE: 20230101
